FAERS Safety Report 7770057-9 (Version None)
Quarter: 2011Q3

REPORT INFORMATION
  Report Type: 
  Country: None (occurrence: None)
  Receive Date: 20110922
  Receipt Date: 20110531
  Transmission Date: 20111222
  Serious: Yes (Other)
  Sender: FDA-Public Use
  Company Number: US-ASTRAZENECA-2011SE18920

PATIENT
  Age: 59 Year
  Sex: Female
  Weight: 61.2 kg

DRUGS (6)
  1. KLONOPIN [Concomitant]
     Indication: SLEEP DISORDER
     Dosage: 0.5 MGS IN MORNING AND  ONE MG IN THE EVENING
     Route: 048
  2. TYLENOL PM [Concomitant]
     Indication: DEPRESSION
     Route: 048
  3. PROZAC [Concomitant]
     Route: 048
  4. SEROQUEL XR [Suspect]
     Indication: BIPOLAR DISORDER
     Route: 048
  5. KLONOPIN [Concomitant]
     Indication: ANXIETY
     Dosage: 0.5 MGS IN MORNING AND  ONE MG IN THE EVENING
     Route: 048
  6. SEROQUEL XR [Suspect]
     Route: 048
     Dates: start: 20110401

REACTIONS (1)
  - SEDATION [None]
